FAERS Safety Report 5276322-1 (Version None)
Quarter: 2007Q1

REPORT INFORMATION
  Report Type: 
  Country: None (occurrence: None)
  Receive Date: 20070326
  Receipt Date: 20070314
  Transmission Date: 20070707
  Serious: Yes (Other)
  Sender: FDA-Public Use
  Company Number: IL-PFIZER INC-2007020324

PATIENT
  Age: 54 Year
  Sex: Male

DRUGS (6)
  1. LYRICA [Suspect]
     Route: 048
  2. FOLIC ACID [Concomitant]
  3. ASCORBIC ACID [Concomitant]
  4. VIT B1,IN COMBINATION WITH VITAMIN B6 AND B12 [Concomitant]
  5. TRITACE [Concomitant]
  6. ALL OTHER THERAPEUTIC PRODUCTS [Concomitant]

REACTIONS (1)
  - RECTAL HAEMORRHAGE [None]
